FAERS Safety Report 7479162-8 (Version None)
Quarter: 2011Q2

REPORT INFORMATION
  Report Type: 
  Country: None (occurrence: None)
  Receive Date: 20110513
  Receipt Date: 20110510
  Transmission Date: 20111010
  Serious: Yes (Hospitalization)
  Sender: FDA-Public Use
  Company Number: CL-ABBOTT-11P-034-0724820-00

PATIENT
  Age: 10 Year
  Sex: Male

DRUGS (1)
  1. LEUPROLIDE ACETATE [Suspect]
     Indication: PRECOCIOUS PUBERTY
     Route: 030
     Dates: start: 20110301, end: 20110301

REACTIONS (2)
  - OBSESSIVE-COMPULSIVE DISORDER [None]
  - PERSONALITY DISORDER [None]
